FAERS Safety Report 9280201 (Version 1)
Quarter: 2013Q2

REPORT INFORMATION
  Report Type: Spontaneous
  Country: DE (occurrence: DE)
  Receive Date: 20130509
  Receipt Date: 20130509
  Transmission Date: 20140414
  Serious: Yes (Other)
  Sender: FDA-Public Use
  Company Number: DE-JNJFOC-20130500690

PATIENT
  Age: 69 Year
  Sex: Female
  Weight: 49.89 kg

DRUGS (1)
  1. XARELTO [Suspect]
     Indication: VENOUS THROMBOSIS LIMB
     Route: 048
     Dates: start: 2011

REACTIONS (4)
  - Lower gastrointestinal haemorrhage [Recovered/Resolved]
  - Anal stenosis [Recovered/Resolved]
  - Anal skin tags [Recovered/Resolved]
  - Haemorrhoids [Recovered/Resolved]
